FAERS Safety Report 7215097-3 (Version None)
Quarter: 2011Q1

REPORT INFORMATION
  Report Type: 
  Country: None (occurrence: None)
  Receive Date: 20110107
  Receipt Date: 20100820
  Transmission Date: 20110831
  Serious: No
  Sender: FDA-Public Use
  Company Number: A0877006A

PATIENT
  Age: 65 Year
  Sex: Male

DRUGS (7)
  1. ACTOS [Concomitant]
  2. SIMVASTATIN [Concomitant]
  3. LOVAZA [Suspect]
     Dosage: 2CAP TWICE PER DAY
     Route: 048
     Dates: start: 20100201
  4. DICLOFENAC [Concomitant]
  5. GLIPIZIDE [Concomitant]
  6. METFORMIN [Concomitant]
  7. METOPROLOL [Concomitant]

REACTIONS (1)
  - ERUCTATION [None]
